FAERS Safety Report 5159435-4 (Version None)
Quarter: 2006Q4

REPORT INFORMATION
  Report Type: 
  Country: None (occurrence: None)
  Receive Date: 20061122
  Receipt Date: 20061122
  Transmission Date: 20070319
  Serious: Yes (Hospitalization)
  Sender: FDA-Public Use
  Company Number: None

PATIENT
  Sex: Female
  Weight: 80 kg

DRUGS (3)
  1. RAD001-NOVARTIS [Suspect]
     Indication: METASTATIC RENAL CELL CARCINOMA
     Dosage: 2.5 MG QD ORAL
     Route: 048
     Dates: start: 20060908, end: 20061118
  2. IMATINIB MESYLATE - NOVARTIS [Suspect]
     Indication: METASTATIC RENAL CELL CARCINOMA
     Dosage: 100 MG 4XD ORAL
     Route: 048
     Dates: start: 20060908, end: 20061118
  3. TARKA [Concomitant]

REACTIONS (1)
  - ANGIONEUROTIC OEDEMA [None]
